FAERS Safety Report 5952006-9 (Version None)
Quarter: 2008Q4

REPORT INFORMATION
  Report Type: 
  Country: None (occurrence: None)
  Receive Date: 20081113
  Receipt Date: 20071127
  Transmission Date: 20090506
  Serious: No
  Sender: FDA-Public Use
  Company Number: A0693939A

PATIENT
  Age: 87 Year
  Sex: Male

DRUGS (9)
  1. COREG [Suspect]
     Indication: LEFT VENTRICULAR DYSFUNCTION
     Dosage: 6.25MG TWICE PER DAY
     Route: 048
     Dates: start: 20050101
  2. ZOCOR [Concomitant]
  3. ALTACE [Concomitant]
  4. CRANBERRY [Concomitant]
  5. MINERAL TAB [Concomitant]
  6. ASPIRIN [Concomitant]
  7. UNKNOWN DRUG [Concomitant]
  8. NEXIUM [Concomitant]
  9. IMIPRAMINE [Concomitant]

REACTIONS (6)
  - DIZZINESS POSTURAL [None]
  - HEADACHE [None]
  - MALAISE [None]
  - MEDICATION ERROR [None]
  - MUSCULOSKELETAL DISCOMFORT [None]
  - OVERDOSE [None]
